FAERS Safety Report 9433985 (Version 2)
Quarter: 2013Q3

REPORT INFORMATION
  Report Type: Report from Study
  Country: US (occurrence: US)
  Receive Date: 20130801
  Receipt Date: 20130815
  Transmission Date: 20140515
  Serious: Yes (Death)
  Sender: FDA-Public Use
  Company Number: US-ROCHE-1255742

PATIENT
  Sex: Female
  Weight: 46.31 kg

DRUGS (33)
  1. AVASTIN [Suspect]
     Indication: PRODUCT USED FOR UNKNOWN INDICATION
     Route: 065
  2. COMPAZINE [Concomitant]
  3. DEXAMETHASONE [Concomitant]
     Route: 065
  4. DILAUDID [Concomitant]
     Route: 065
  5. HYDROCODONE/ACETAMINOPHEN [Concomitant]
  6. KLOR-CON 10 [Concomitant]
     Route: 065
  7. LOMOTIL (ATROPINE/DIPHENOXYLATE) [Concomitant]
     Route: 065
  8. MIRALAX [Concomitant]
  9. MORPHINE SULPHATE SR [Concomitant]
  10. PHENERGAN [Concomitant]
  11. ZITHROMAX Z-PAK [Concomitant]
     Route: 065
  12. CELEBREX [Concomitant]
     Route: 065
  13. TRAMADOL [Concomitant]
     Route: 065
  14. 5-FLUOROURACIL [Concomitant]
  15. ACTIVASE [Concomitant]
     Route: 065
  16. ATROPINE SULFATE [Concomitant]
  17. CALCIUM GLUCONATE [Concomitant]
  18. CAPECITABINE [Concomitant]
     Route: 065
  19. EPOETIN ALFA [Concomitant]
  20. DEXAMETHASONE SODIUM PHOSPHATE [Concomitant]
  21. FOSAPREPITANT DIMEGLUMINE [Concomitant]
  22. FUSILEV [Concomitant]
  23. HEPARIN LOCK FLUSH [Concomitant]
  24. IRINOTECAN HYDROCHLORIDE [Concomitant]
  25. K-DUR [Concomitant]
  26. LEUCOVORIN [Concomitant]
  27. MAGNESIUM SULPHATE [Concomitant]
  28. MOBIC [Concomitant]
  29. OXALIPLATIN [Concomitant]
  30. PALONOSETRON HYDROCHLORIDE [Concomitant]
  31. PEGFILGRASTIM [Concomitant]
     Route: 065
  32. ZOFRAN [Concomitant]
  33. ZOMETA [Concomitant]

REACTIONS (1)
  - Colon cancer [Fatal]
